FAERS Safety Report 4893594-3 (Version None)
Quarter: 2006Q1

REPORT INFORMATION
  Report Type: 
  Country: None (occurrence: None)
  Receive Date: 20060124
  Receipt Date: 20060113
  Transmission Date: 20060701
  Serious: Yes (Life-Threatening, Hospitalization, Disabling, Other)
  Sender: FDA-Public Use
  Company Number: 2005167561

PATIENT
  Age: 42 Year
  Sex: Female
  Weight: 80 kg

DRUGS (5)
  1. LYRICA [Suspect]
     Indication: BACK PAIN
     Dosage: 300 MG (150 MG, 2 IN 1 D), ORAL
     Route: 048
     Dates: start: 20051127
  2. OXYCONTIN [Concomitant]
  3. VALIUM [Concomitant]
  4. NORFLEX [Concomitant]
  5. PROTHIADEN [Concomitant]

REACTIONS (5)
  - C-REACTIVE PROTEIN INCREASED [None]
  - CONFUSIONAL STATE [None]
  - ENCEPHALOPATHY [None]
  - HALLUCINATION [None]
  - PYREXIA [None]
